FAERS Safety Report 11825021 (Version 5)
Quarter: 2016Q3

REPORT INFORMATION
  Report Type: Report from Study
  Country: BR (occurrence: BR)
  Receive Date: 20151211
  Receipt Date: 20160927
  Transmission Date: 20161109
  Serious: Yes (Hospitalization, Other)
  Sender: FDA-Public Use
  Company Number: PHHY2015BR123642

PATIENT
  Sex: Female
  Weight: 34 kg

DRUGS (5)
  1. FOLIC ACID. [Concomitant]
     Active Substance: FOLIC ACID
     Indication: SICKLE CELL ANAEMIA
     Route: 065
  2. DIPYRONE [Concomitant]
     Active Substance: DIPYRONE
     Indication: PRODUCT USED FOR UNKNOWN INDICATION
     Route: 065
  3. EXJADE [Suspect]
     Active Substance: DEFERASIROX
     Indication: SICKLE CELL ANAEMIA
     Dosage: 15 MG/KG, QD
     Route: 048
  4. EXJADE [Suspect]
     Active Substance: DEFERASIROX
     Dosage: 1 DF, QOD
     Route: 048
     Dates: end: 201605
  5. EXJADE [Suspect]
     Active Substance: DEFERASIROX
     Dosage: 15 MG/KG, QD (1 DF OF 500 MG)
     Route: 048
     Dates: start: 201606

REACTIONS (15)
  - Abdominal pain [Unknown]
  - Sickle cell anaemia with crisis [Unknown]
  - Malaise [Unknown]
  - Cholecystitis [Unknown]
  - Nasopharyngitis [Unknown]
  - Wrong technique in product usage process [Unknown]
  - Cholelithiasis [Unknown]
  - Cough [Recovering/Resolving]
  - Anaemia [Unknown]
  - Ocular icterus [Unknown]
  - Inappropriate schedule of drug administration [Unknown]
  - Dysentery [Recovered/Resolved]
  - Abdominal pain upper [Unknown]
  - Back pain [Unknown]
  - Yellow skin [Unknown]
